FAERS Safety Report 16644881 (Version 2)
Quarter: 2019Q3

REPORT INFORMATION
  Report Type: Report from Study
  Country: US (occurrence: US)
  Receive Date: 20190729
  Receipt Date: 20190812
  Transmission Date: 20191004
  Serious: No
  Sender: FDA-Public Use
  Company Number: US-SA-2019SA201826

PATIENT
  Age: 33 Year
  Sex: Male

DRUGS (1)
  1. ALEMTUZUMAB [Suspect]
     Active Substance: ALEMTUZUMAB
     Dosage: UNK UNK, UNK
     Route: 041

REACTIONS (4)
  - Head injury [Unknown]
  - Dysgraphia [Unknown]
  - Concussion [Unknown]
  - Tremor [Unknown]
